FAERS Safety Report 24844294 (Version 1)
Quarter: 2025Q1

REPORT INFORMATION
  Report Type: Spontaneous
  Country: US (occurrence: None)
  Receive Date: 20250114
  Receipt Date: 20250114
  Transmission Date: 20250409
  Serious: No
  Sender: FDA-CTU
  Company Number: None

PATIENT
  Age: 75 Year
  Sex: Male

DRUGS (2)
  1. CARBOPLATIN [Suspect]
     Active Substance: CARBOPLATIN
     Indication: Squamous cell carcinoma of lung
     Route: 042
     Dates: start: 20241119, end: 20241119
  2. PACLITAXEL [Suspect]
     Active Substance: PACLITAXEL
     Route: 042
     Dates: start: 20241119, end: 20241119

REACTIONS (7)
  - Dyspnoea [None]
  - Fatigue [None]
  - Pyrexia [None]
  - Hypotension [None]
  - Pruritus [None]
  - Tachycardia [None]
  - Nausea [None]

NARRATIVE: CASE EVENT DATE: 20241120
